FAERS Safety Report 6198986-0 (Version None)
Quarter: 2009Q2

REPORT INFORMATION
  Report Type: 
  Country: None (occurrence: None)
  Receive Date: 20090522
  Receipt Date: 20090514
  Transmission Date: 20091009
  Serious: Yes (Hospitalization)
  Sender: FDA-Public Use
  Company Number: US-ELI_LILLY_AND_COMPANY-US200905003121

PATIENT
  Sex: Male

DRUGS (4)
  1. HUMULIN R [Suspect]
     Dosage: 50 U, 3/D
  2. HUMULIN R [Suspect]
     Dosage: 54 U, 3/D
  3. HUMULIN R [Suspect]
     Dosage: 50 U, 3/D
  4. HUMULIN R [Suspect]
     Dosage: 54 U, 3/D

REACTIONS (7)
  - BLOOD GLUCOSE DECREASED [None]
  - BLOOD GLUCOSE INCREASED [None]
  - CARDIAC PACEMAKER INSERTION [None]
  - DRUG INEFFECTIVE [None]
  - FEELING ABNORMAL [None]
  - HOSPITALISATION [None]
  - INSULIN RESISTANCE [None]
